FAERS Safety Report 9222493 (Version 1)
Quarter: 2013Q2

REPORT INFORMATION
  Report Type: Spontaneous
  Country: TR (occurrence: TR)
  Receive Date: 20130410
  Receipt Date: 20130410
  Transmission Date: 20140414
  Serious: Yes (Other)
  Sender: FDA-Public Use
  Company Number: TR-ROXANE LABORATORIES, INC.-2012-RO-01609RO

PATIENT
  Age: 84 Year
  Sex: Male

DRUGS (3)
  1. DONEPEZIL HYDROCHLORIDE [Suspect]
     Indication: DEMENTIA ALZHEIMER^S TYPE
     Dosage: 5 MG
  2. RAMIPRIL [Suspect]
     Dosage: 5 MG
  3. METOPROLOL [Suspect]
     Indication: HYPERTENSION
     Dosage: 5 MG

REACTIONS (2)
  - Bradyarrhythmia [Recovered/Resolved]
  - Atrioventricular block complete [Recovered/Resolved]
